FAERS Safety Report 8548314-8 (Version None)
Quarter: 2012Q3

REPORT INFORMATION
  Report Type: 
  Country: None (occurrence: None)
  Receive Date: 20120717
  Receipt Date: 20120706
  Transmission Date: 20120928
  Serious: Yes (Hospitalization)
  Sender: FDA-Public Use
  Company Number: AUR-APL-2012-02979

PATIENT
  Age: 78 Year
  Sex: Male

DRUGS (9)
  1. METFFORMIN HYDROCHLORIDE [Suspect]
     Indication: TYPE 2 DIABETES MELLITUS
     Dosage: 1250 MG EVERY DAY, ORAL
     Route: 048
     Dates: start: 20060623, end: 20120623
  2. BISOPROLOL FUMARATE [Concomitant]
  3. LORAZEPAM [Concomitant]
  4. GLICLAZIDE (GLICLAZIDE) [Suspect]
     Indication: TYPE 2 DIABETES MELLITUS
     Dosage: 1 DF EVERY DAY, ORAL
     Route: 048
     Dates: start: 20120612, end: 20120623
  5. FUROSEMIDE [Concomitant]
  6. ATORVASTATIN [Concomitant]
  7. COUMADIN [Concomitant]
  8. ESOMEPRAZOLE MAGNESIUM [Concomitant]
  9. RAMIPRIL [Concomitant]

REACTIONS (3)
  - BRADYPHRENIA [None]
  - BRADYKINESIA [None]
  - HYPOGLYCAEMIA [None]
